FAERS Safety Report 11857547 (Version 3)
Quarter: 2016Q1

REPORT INFORMATION
  Report Type: Report from Study
  Country: US (occurrence: US)
  Receive Date: 20151221
  Receipt Date: 20160331
  Transmission Date: 20160526
  Serious: Yes (Other)
  Sender: FDA-Public Use
  Company Number: US-JNJFOC-20151215206

PATIENT
  Age: 76 Year
  Sex: Female

DRUGS (5)
  1. LEVOTHYROXINE. [Concomitant]
     Active Substance: LEVOTHYROXINE
  2. IMBRUVICA [Suspect]
     Active Substance: IBRUTINIB
     Indication: LYMPHOMA
     Route: 048
     Dates: start: 20150519
  3. WARFARIN [Suspect]
     Active Substance: WARFARIN
     Indication: PRODUCT USED FOR UNKNOWN INDICATION
     Route: 065
     Dates: start: 201508, end: 2015
  4. DILTIAZEM [Concomitant]
     Active Substance: DILTIAZEM
  5. PRADAXA [Concomitant]
     Active Substance: DABIGATRAN ETEXILATE MESYLATE

REACTIONS (9)
  - Oedema peripheral [Unknown]
  - Incorrect dose administered [Unknown]
  - Ear haemorrhage [Unknown]
  - Dyspnoea [Unknown]
  - Off label use [Unknown]
  - Increased tendency to bruise [Unknown]
  - Atrial fibrillation [Unknown]
  - Skin discolouration [Unknown]
  - Ear disorder [Unknown]

NARRATIVE: CASE EVENT DATE: 2015
